FAERS Safety Report 23168301 (Version 1)
Quarter: 2023Q4

REPORT INFORMATION
  Report Type: Spontaneous
  Country: US (occurrence: US)
  Receive Date: 20231109
  Receipt Date: 20231109
  Transmission Date: 20240110
  Serious: No
  Sender: FDA-Public Use
  Company Number: US-DSJP-DSJ-2023-145654

PATIENT
  Age: 62 Year
  Sex: Female

DRUGS (1)
  1. TRASTUZUMAB DERUXTECAN [Suspect]
     Active Substance: TRASTUZUMAB DERUXTECAN
     Indication: Lung adenocarcinoma stage I
     Dosage: UNK, FOR THREE CYCLES
     Route: 065

REACTIONS (1)
  - Drug ineffective [Unknown]
